FAERS Safety Report 9523915 (Version 1)
Quarter: 2013Q3

REPORT INFORMATION
  Report Type: Spontaneous
  Country: US (occurrence: None)
  Receive Date: 20130912
  Receipt Date: 20130912
  Transmission Date: 20140515
  Serious: Yes (Hospitalization)
  Sender: FDA-Public Use
  Company Number: SYM-2013-10489

PATIENT
  Age: 35 Year
  Sex: Male

DRUGS (5)
  1. FLUOROURACIL [Suspect]
     Indication: RECTAL CANCER STAGE III
  2. CAPECITABINE [Suspect]
     Indication: RECTAL CANCER STAGE III
     Route: 048
  3. LEUCOVORIN (FOLINIC ACID) (FOLINIC ACID) [Concomitant]
  4. OXALIPLATIN (OXALIPLATIN) (OXALIPLATIN) [Concomitant]
  5. THERAPEUTIC RADIOPHARMACEUTICALS (THERAPEUTIC RADIOPHARMACEUTICALS) [Concomitant]

REACTIONS (5)
  - Cardiotoxicity [None]
  - Blood creatine phosphokinase increased [None]
  - Blood creatine phosphokinase MB increased [None]
  - Electrocardiogram T wave abnormal [None]
  - Chest pain [None]
